FAERS Safety Report 4911821-0 (Version None)
Quarter: 2006Q1

REPORT INFORMATION
  Report Type: 
  Country: None (occurrence: None)
  Receive Date: 20060213
  Receipt Date: 20060213
  Transmission Date: 20060701
  Serious: Yes (Other)
  Sender: FDA-Public Use
  Company Number: None

PATIENT
  Age: 88 Year
  Sex: Female

DRUGS (2)
  1. LUMIGAN [Suspect]
     Indication: GLAUCOMA
     Dosage: ONCE DAILY  LEFT EYE
     Dates: start: 20050829, end: 20050928
  2. BRIMONIDINE TARTRATE [Concomitant]

REACTIONS (1)
  - EYE IRRITATION [None]
